FAERS Safety Report 18839246 (Version 1)
Quarter: 2021Q1

REPORT INFORMATION
  Report Type: Spontaneous
  Country: SE (occurrence: SE)
  Receive Date: 20210203
  Receipt Date: 20210203
  Transmission Date: 20210419
  Serious: Yes (Hospitalization, Other)
  Sender: FDA-Public Use
  Company Number: SE-PURDUE-USA-2021-0202932

PATIENT
  Age: 64 Year
  Sex: Male

DRUGS (5)
  1. FLUCLOXACILLIN [Suspect]
     Active Substance: FLUCLOXACILLIN
     Indication: FOOT OPERATION
     Dosage: UNK UNK, UNK
     Route: 065
     Dates: start: 20200924
  2. ALVEDON [Concomitant]
     Active Substance: ACETAMINOPHEN
     Dates: start: 20200925, end: 20201004
  3. OXYCONTIN [Suspect]
     Active Substance: OXYCODONE HYDROCHLORIDE
     Indication: FOOT OPERATION
     Dosage: UNK (STRENGTH 10MG) (DOSAGE TEXT:JAG TOG ENDAST 8 ST FORSTA VECKAN)
     Route: 065
     Dates: start: 20200925, end: 20201001
  4. FRAGMIN [Concomitant]
     Active Substance: DALTEPARIN SODIUM
     Dates: start: 20200925, end: 20201004
  5. OXYNORM [Suspect]
     Active Substance: OXYCODONE HYDROCHLORIDE
     Indication: FOOT OPERATION
     Dosage: UNK (STRENGTH 5 MG) (DOSAGE TEXT: MAX 4 GGR/DAG, JAG TOG DOCK ENDAST 3 ST FORSTA VECKAN)
     Route: 065
     Dates: start: 20200925, end: 20200929

REACTIONS (4)
  - Hepatitis [Recovering/Resolving]
  - Nausea [Recovering/Resolving]
  - Pruritus [Recovering/Resolving]
  - Fatigue [Recovering/Resolving]

NARRATIVE: CASE EVENT DATE: 20201015
